FAERS Safety Report 6905990-0 (Version None)
Quarter: 2010Q3

REPORT INFORMATION
  Report Type: 
  Country: None (occurrence: None)
  Receive Date: 20100804
  Receipt Date: 20100721
  Transmission Date: 20110219
  Serious: Yes (Hospitalization)
  Sender: FDA-Public Use
  Company Number: PHHY2010JP48118

PATIENT
  Age: 68 Year
  Sex: Female

DRUGS (2)
  1. TOFRANIL [Suspect]
     Dosage: UNK
  2. PARLODEL [Suspect]
     Dosage: UNK

REACTIONS (3)
  - NEUROLEPTIC MALIGNANT SYNDROME [None]
  - PLATELET COUNT DECREASED [None]
  - PYREXIA [None]
